FAERS Safety Report 8903303 (Version 3)
Quarter: 2012Q4

REPORT INFORMATION
  Report Type: 
  Country: DE (occurrence: DE)
  Receive Date: 20121112
  Receipt Date: 20121210
  Transmission Date: 20130627
  Serious: Yes (Hospitalization, Other)
  Sender: FDA-Public Use
  Company Number: DE-AMGEN-DEUSP2012071150

PATIENT
  Age: 62 Year
  Sex: Female
  Weight: 69 kg

DRUGS (15)
  1. PROLIA [Suspect]
     Indication: OSTEOPOROSIS
     Dosage: 80 mg, one time dose
     Route: 058
     Dates: start: 20120413, end: 20120413
  2. ENBREL [Suspect]
     Indication: PRODUCT USED FOR UNKNOWN INDICATION
     Dosage: 50 mg, qwk
     Route: 058
     Dates: end: 201206
  3. ATACAND [Concomitant]
     Indication: CORONARY ARTERY DISEASE
     Dosage: UNK
     Dates: start: 2006
  4. CALCIGEN D3 [Concomitant]
     Indication: OSTEOPOROSIS PROPHYLAXIS
     Dosage: UNK
     Dates: start: 2010
  5. DURADIURET [Concomitant]
  6. PREDNISOLON                        /00016201/ [Concomitant]
     Indication: RHEUMATIC DISORDER
     Dosage: 20 mg, UNK
     Dates: start: 2010
  7. SOTAHEXAL [Concomitant]
     Indication: ARRHYTHMIA
     Dosage: 80 mug, UNK
     Dates: start: 2008
  8. METHOTREXATE [Concomitant]
     Indication: RHEUMATOID ARTHRITIS
     Dosage: 7.5 mg, qwk
     Route: 058
  9. ILOPROST [Concomitant]
  10. FOLIC ACID [Concomitant]
     Dosage: 5 mg, qwk
  11. PREGABALIN [Concomitant]
     Dosage: 75 mg, UNK
  12. CLOPIDOGREL [Concomitant]
     Dosage: 75 mg, UNK
  13. CANDESARTAN [Concomitant]
     Dosage: 60 mg, UNK
  14. CALCIUM + VIT D [Concomitant]
     Dosage: UNK UNK, qd
  15. ORENCIA [Concomitant]
     Indication: RHEUMATOID ARTHRITIS
     Dosage: 500 mg, UNK

REACTIONS (9)
  - Dermatitis allergic [Unknown]
  - Lumbar vertebral fracture [Recovering/Resolving]
  - Thoracic vertebral fracture [Unknown]
  - Generalised erythema [Recovered/Resolved]
  - Skin burning sensation [Recovered/Resolved]
  - Pruritus [Recovered/Resolved]
  - Myalgia [Recovering/Resolving]
  - Hepatic cyst [Unknown]
  - Rash [Recovered/Resolved]
